FAERS Safety Report 4518568-3 (Version None)
Quarter: 2004Q4

REPORT INFORMATION
  Report Type: 
  Country: None (occurrence: None)
  Receive Date: 20041201
  Receipt Date: 20041122
  Transmission Date: 20050328
  Serious: Yes (Hospitalization)
  Sender: FDA-Public Use
  Company Number: 2004-11-1447

PATIENT
  Age: 52 Year
  Sex: Male

DRUGS (2)
  1. PEG-INTRON [Suspect]
     Dosage: MONTHS
  2. REBETOL [Suspect]
     Dosage: ORAL,MONTHS
     Route: 048

REACTIONS (3)
  - DEHYDRATION [None]
  - PANCREATITIS [None]
  - PANCYTOPENIA [None]
